FAERS Safety Report 8250778-4 (Version None)
Quarter: 2012Q1

REPORT INFORMATION
  Report Type: 
  Country: None (occurrence: None)
  Receive Date: 20120319
  Receipt Date: 20090801
  Transmission Date: 20120608
  Serious: Yes (Other)
  Sender: FDA-Public Use
  Company Number: PHEH2009US08660

PATIENT
  Sex: Male

DRUGS (1)
  1. TEKTURNA [Suspect]

REACTIONS (3)
  - SWOLLEN TONGUE [None]
  - LIP DRY [None]
  - LIP SWELLING [None]
